FAERS Safety Report 20933434 (Version 2)
Quarter: 2022Q3

REPORT INFORMATION
  Report Type: Spontaneous
  Country: IT (occurrence: IT)
  Receive Date: 20220608
  Receipt Date: 20220707
  Transmission Date: 20221027
  Serious: Yes (Life-Threatening, Hospitalization, Other)
  Sender: FDA-Public Use
  Company Number: IT-BAXTER-2022BAX011100

PATIENT
  Age: 38 Year
  Sex: Female

DRUGS (39)
  1. SEVOFLURANE [Suspect]
     Active Substance: SEVOFLURANE
     Indication: Status epilepticus
     Dosage: UNK
     Route: 065
     Dates: start: 2016
  2. PROPOFOL [Suspect]
     Active Substance: PROPOFOL
     Indication: Status epilepticus
     Dosage: 2?6.6 MG/KG/H
     Route: 042
     Dates: start: 2016
  3. PROPOFOL [Suspect]
     Active Substance: PROPOFOL
     Dosage: 2?6.6 MG/KG/H
     Route: 042
     Dates: start: 2016
  4. KETAMINE [Suspect]
     Active Substance: KETAMINE
     Indication: Status epilepticus
     Dosage: 2?4 MG/KG/H
     Route: 042
     Dates: start: 2016
  5. KETAMINE [Suspect]
     Active Substance: KETAMINE
     Dosage: 2?4 MG/KG/H
     Route: 042
     Dates: start: 2016
  6. MIDAZOLAM [Suspect]
     Active Substance: MIDAZOLAM
     Indication: Status epilepticus
     Dosage: 0.13?0.3 MG/KG/H: MAXIMUM DOSES OF THE FOLLOWING ONES WERE INTRAVENOUSLY
     Route: 042
     Dates: start: 2016
  7. MIDAZOLAM [Suspect]
     Active Substance: MIDAZOLAM
     Dosage: 0.13 MG/KG, 1X AN HOUR
     Route: 042
     Dates: start: 20160815
  8. MIDAZOLAM [Suspect]
     Active Substance: MIDAZOLAM
     Dosage: 0.13?0.3 MG/KG/H: MAXIMUM DOSES OF THE FOLLOWING ONES WERE INTRAVENOUSLY
     Route: 042
     Dates: start: 2016
  9. THIOPENTAL SODIUM [Suspect]
     Active Substance: THIOPENTAL SODIUM
     Indication: Status epilepticus
     Dosage: 3 MG/KG, 1X AN HOUR
     Route: 042
     Dates: start: 20160815
  10. THIOPENTAL SODIUM [Suspect]
     Active Substance: THIOPENTAL SODIUM
     Dosage: 1?5 MG/KG/H
     Route: 042
     Dates: start: 2016
  11. THIOPENTAL SODIUM [Suspect]
     Active Substance: THIOPENTAL SODIUM
     Dosage: 1?5 MG/KG/H
     Route: 042
     Dates: start: 2016
  12. THIOPENTAL SODIUM [Suspect]
     Active Substance: THIOPENTAL SODIUM
     Dosage: 1?5 MG/KG/H
     Route: 042
     Dates: start: 2016
  13. MAGNESIUM SULFATE [Concomitant]
     Active Substance: MAGNESIUM SULFATE
     Indication: Status epilepticus
     Dosage: UNK
     Route: 065
  14. HUMAN IMMUNOGLOBULIN G [Concomitant]
     Active Substance: HUMAN IMMUNOGLOBULIN G
     Indication: Status epilepticus
     Dosage: 0.4 G/KG OVER 5 DAYS FOR TWO TIMES
     Route: 042
     Dates: start: 2016
  15. TOPIRAMATE [Concomitant]
     Active Substance: TOPIRAMATE
     Indication: Status epilepticus
     Dosage: 300?600 MG/DAY
     Dates: start: 2016
  16. TOPIRAMATE [Concomitant]
     Active Substance: TOPIRAMATE
     Dosage: 300?600 MG/DAY
     Dates: start: 2016
  17. PHENYTOIN [Concomitant]
     Active Substance: PHENYTOIN
     Indication: Status epilepticus
     Dosage: 250?750 MG/DAY
     Route: 065
     Dates: start: 2016
  18. PHENYTOIN [Concomitant]
     Active Substance: PHENYTOIN
     Dosage: MAXIMUM DOSES WERE INTRAVENOUSLY ADMINISTERED
     Route: 042
     Dates: start: 2016
  19. PHENYTOIN [Concomitant]
     Active Substance: PHENYTOIN
     Dosage: 500 MG
     Route: 065
     Dates: start: 20160821
  20. PHENYTOIN [Concomitant]
     Active Substance: PHENYTOIN
     Dosage: 800 MG
     Route: 065
     Dates: start: 20160815
  21. PHENYTOIN [Concomitant]
     Active Substance: PHENYTOIN
     Dosage: 250?750 MG/DAY
     Route: 065
     Dates: start: 2016
  22. PERAMPANEL [Concomitant]
     Active Substance: PERAMPANEL
     Indication: Status epilepticus
     Dosage: 8?16 MG/DAY
     Dates: start: 201608
  23. PERAMPANEL [Concomitant]
     Active Substance: PERAMPANEL
     Dosage: 8?16 MG/DAY
     Dates: start: 201608
  24. PHENOBARBITAL [Concomitant]
     Active Substance: PHENOBARBITAL
     Indication: Status epilepticus
     Dosage: MAXIMUM DOSES WERE INTRAVENOUSLY ADMINISTERED
     Route: 042
     Dates: start: 2016
  25. PHENOBARBITAL [Concomitant]
     Active Substance: PHENOBARBITAL
     Dosage: 200?300 MG/DAY
     Route: 065
     Dates: start: 2016
  26. PHENOBARBITAL [Concomitant]
     Active Substance: PHENOBARBITAL
     Dosage: 200 MG, QD
     Route: 065
     Dates: start: 20160821
  27. PHENOBARBITAL [Concomitant]
     Active Substance: PHENOBARBITAL
     Dosage: 200?300 MG/DAY
     Route: 065
     Dates: start: 2016
  28. LEVETIRACETAM [Concomitant]
     Active Substance: LEVETIRACETAM
     Indication: Status epilepticus
     Dosage: 2000?3000 MG/DAY
     Route: 065
     Dates: start: 2016
  29. LEVETIRACETAM [Concomitant]
     Active Substance: LEVETIRACETAM
     Dosage: MAXIMUM DOSES WERE INTRAVENOUSLY ADMINISTERED
     Route: 042
     Dates: start: 2016
  30. LEVETIRACETAM [Concomitant]
     Active Substance: LEVETIRACETAM
     Dosage: 2000?3000 MG/DAY
     Route: 065
     Dates: start: 2016
  31. LEVETIRACETAM [Concomitant]
     Active Substance: LEVETIRACETAM
     Dosage: 3000 MG, QD
     Route: 065
     Dates: start: 20160821
  32. METHYLPREDNISOLONE [Concomitant]
     Active Substance: METHYLPREDNISOLONE
     Indication: Status epilepticus
     Dosage: 1 GR/DAY OVER 5 DAYS FOR THREE TIMES
     Route: 042
     Dates: start: 2016
  33. LACOSAMIDE [Concomitant]
     Active Substance: LACOSAMIDE
     Indication: Status epilepticus
     Dosage: 400?600 MG/DAY
     Route: 065
     Dates: start: 2016
  34. LACOSAMIDE [Concomitant]
     Active Substance: LACOSAMIDE
     Dosage: 400?600 MG/DAY
     Route: 065
     Dates: start: 2016
  35. LACOSAMIDE [Concomitant]
     Active Substance: LACOSAMIDE
     Dosage: MAXIMUM DOSES WERE INTRAVENOUSLY ADMINISTERED
     Route: 042
     Dates: start: 2016
  36. LACOSAMIDE [Concomitant]
     Active Substance: LACOSAMIDE
     Dosage: 400?600 MG/DAY
     Route: 065
     Dates: start: 2016
  37. VALPROIC ACID [Concomitant]
     Active Substance: VALPROIC ACID
     Indication: Status epilepticus
     Dosage: 500-2000 MG/DAY
     Route: 065
     Dates: start: 2016
  38. VALPROIC ACID [Concomitant]
     Active Substance: VALPROIC ACID
     Dosage: MAXIMUM DOSES WERE INTRAVENOUSLY ADMINISTERED
     Route: 042
     Dates: start: 2016
  39. VALPROIC ACID [Concomitant]
     Active Substance: VALPROIC ACID
     Dosage: 500-2000 MG/DAY
     Route: 065
     Dates: start: 2016

REACTIONS (4)
  - Acute lung injury [Unknown]
  - Multiple organ dysfunction syndrome [Unknown]
  - Hypotension [Unknown]
  - Bradycardia [Unknown]

NARRATIVE: CASE EVENT DATE: 20160101
